FAERS Safety Report 14895179 (Version 1)
Quarter: 2018Q2

REPORT INFORMATION
  Report Type: Spontaneous
  Country: US (occurrence: US)
  Receive Date: 20180515
  Receipt Date: 20180515
  Transmission Date: 20180711
  Serious: No
  Sender: FDA-Public Use
  Company Number: US-PFIZER INC-2017184061

PATIENT
  Age: 8 Year
  Sex: Female

DRUGS (1)
  1. GENOTROPIN [Suspect]
     Active Substance: SOMATROPIN
     Dosage: 0.96 MG, DAILY (7X A WEEK)

REACTIONS (4)
  - Drug prescribing error [Unknown]
  - Drug dose omission [Unknown]
  - Injection site extravasation [Unknown]
  - Wrong technique in product usage process [Unknown]
